FAERS Safety Report 8349665-2 (Version None)
Quarter: 2012Q2

REPORT INFORMATION
  Report Type: 
  Country: None (occurrence: None)
  Receive Date: 20120510
  Receipt Date: 20120426
  Transmission Date: 20120825
  Serious: Yes (Hospitalization, Other)
  Sender: FDA-Public Use
  Company Number: US-MYLANLABS-2009AC000027

PATIENT
  Sex: Male
  Weight: 187.79 kg

DRUGS (35)
  1. FISH OIL [Concomitant]
  2. CARVEDILOL [Concomitant]
  3. DEMADEX [Concomitant]
  4. COREG [Concomitant]
  5. MIRALAX /00754501/ [Concomitant]
  6. INFLUENZA VACCINE [Concomitant]
  7. ROBAXIN [Concomitant]
  8. STOOL SOFTENER [Concomitant]
  9. ASPIRIN [Concomitant]
  10. VITAMIN D [Concomitant]
  11. INDOMETHACIN [Concomitant]
  12. NITROSTAT [Concomitant]
  13. TESSALON [Concomitant]
  14. MUCINEX [Concomitant]
  15. LASIX [Concomitant]
  16. NAPROSYN [Concomitant]
  17. LORTAB [Concomitant]
     Indication: BACK PAIN
  18. METFORMIN HCL [Concomitant]
  19. CLARITIN /00413701/ [Concomitant]
  20. DIGOXIN [Suspect]
     Indication: PRODUCT USED FOR UNKNOWN INDICATION
     Route: 048
     Dates: start: 19990427, end: 20090624
  21. ALDACTONE [Concomitant]
  22. METHOCARBAMOL [Concomitant]
  23. POTASSIUM CHLORIDE [Concomitant]
  24. NEURONTIN [Concomitant]
  25. ARTHROTEC [Concomitant]
  26. XOPENEX [Concomitant]
  27. NITROGLYCERIN [Concomitant]
  28. DIABETA [Concomitant]
  29. IMDUR [Concomitant]
  30. SKELAXIN [Concomitant]
  31. ZITHROMAX [Concomitant]
  32. NITROGLYCERIN [Concomitant]
  33. COZAAR [Concomitant]
     Dosage: 26 TABLETS DAILY
  34. ZESTRIL [Concomitant]
  35. HYDROCHLOROTHIAZIDE [Concomitant]

REACTIONS (91)
  - WHEEZING [None]
  - PAIN [None]
  - DISEASE PROGRESSION [None]
  - PHARYNGEAL ERYTHEMA [None]
  - TENDONITIS [None]
  - VENOUS PRESSURE JUGULAR INCREASED [None]
  - INJURY [None]
  - BACK PAIN [None]
  - SLEEP APNOEA SYNDROME [None]
  - ARTHRALGIA [None]
  - RETINAL DETACHMENT [None]
  - APHAKIA [None]
  - CENTRAL OBESITY [None]
  - CHEST PAIN [None]
  - CHOKING SENSATION [None]
  - DRUG INTOLERANCE [None]
  - DYSLIPIDAEMIA [None]
  - ECHOCARDIOGRAM ABNORMAL [None]
  - LEFT VENTRICULAR DYSFUNCTION [None]
  - MEDICAL DEVICE DISCOMFORT [None]
  - SCAN MYOCARDIAL PERFUSION ABNORMAL [None]
  - ANAEMIA [None]
  - MUSCLE SPASMS [None]
  - HYPOXIA [None]
  - BRONCHITIS [None]
  - RADICULOPATHY [None]
  - MITRAL VALVE INCOMPETENCE [None]
  - DIABETIC NEUROPATHY [None]
  - JOINT CREPITATION [None]
  - LEFT VENTRICULAR HYPERTROPHY [None]
  - PAIN IN EXTREMITY [None]
  - VENTRICULAR EXTRASYSTOLES [None]
  - DYSPNOEA [None]
  - GLAUCOMA [None]
  - ANAEMIA OF CHRONIC DISEASE [None]
  - BLOOD PRESSURE FLUCTUATION [None]
  - DIARRHOEA [None]
  - EXCORIATION [None]
  - HEART SOUNDS ABNORMAL [None]
  - LYMPHADENOPATHY [None]
  - MUSCULOSKELETAL PAIN [None]
  - SINGLE PHOTON EMISSION COMPUTERISED TOMOGRAM ABNORMAL [None]
  - DIZZINESS [None]
  - TYPE 2 DIABETES MELLITUS [None]
  - UPPER RESPIRATORY TRACT INFECTION [None]
  - VISUAL ACUITY REDUCED [None]
  - UPPER-AIRWAY COUGH SYNDROME [None]
  - CARDIAC MURMUR [None]
  - FALL [None]
  - FATIGUE [None]
  - GALLOP RHYTHM PRESENT [None]
  - KERATOPATHY [None]
  - LABORATORY TEST ABNORMAL [None]
  - VITAMIN D DEFICIENCY [None]
  - NASAL CONGESTION [None]
  - OXYGEN SATURATION DECREASED [None]
  - PYREXIA [None]
  - CARDIOMYOPATHY [None]
  - CONSTIPATION [None]
  - OROPHARYNGEAL PAIN [None]
  - OEDEMA PERIPHERAL [None]
  - HYPERLIPIDAEMIA [None]
  - DISEASE RECURRENCE [None]
  - BLOOD PRESSURE INCREASED [None]
  - CONDITION AGGRAVATED [None]
  - DYSPEPSIA [None]
  - NAUSEA [None]
  - PRODUCTIVE COUGH [None]
  - PULMONARY PHYSICAL EXAMINATION ABNORMAL [None]
  - CARDIAC FAILURE [None]
  - COUGH [None]
  - HYPERTENSION [None]
  - HAEMORRHOIDS [None]
  - NEUROPATHY PERIPHERAL [None]
  - CONTUSION [None]
  - DYSPNOEA EXERTIONAL [None]
  - OXYGEN CONSUMPTION DECREASED [None]
  - PHYSICAL EXAMINATION ABNORMAL [None]
  - REFUSAL OF TREATMENT BY PATIENT [None]
  - SENSORY DISTURBANCE [None]
  - SNEEZING [None]
  - SPIROMETRY ABNORMAL [None]
  - ULTRASOUND SCAN ABNORMAL [None]
  - OVERWEIGHT [None]
  - CARDIAC FAILURE CONGESTIVE [None]
  - FEELING ABNORMAL [None]
  - INTRAOCULAR PRESSURE INCREASED [None]
  - LIGAMENT SPRAIN [None]
  - RESPIRATORY TRACT CONGESTION [None]
  - TREATMENT NONCOMPLIANCE [None]
  - WEIGHT DECREASED [None]
